FAERS Safety Report 4310993-9 (Version None)
Quarter: 2004Q1

REPORT INFORMATION
  Report Type: 
  Country: None (occurrence: None)
  Receive Date: 20040302
  Receipt Date: 20040302
  Transmission Date: 20041129
  Serious: Yes (Life-Threatening, Hospitalization, Disabling)
  Sender: FDA-Public Use
  Company Number: None

PATIENT
  Age: 77 Year
  Sex: Female

DRUGS (12)
  1. WARFARIN SODIUM [Suspect]
     Indication: ATRIAL FIBRILLATION
     Dosage: 2 MG DAILY ORAL
     Route: 048
     Dates: start: 20000101, end: 20031124
  2. PRILOSEC [Concomitant]
  3. SPIRONOLACTONE [Concomitant]
  4. MAG-OX [Concomitant]
  5. LEXAPRO [Concomitant]
  6. AMIODARONE HCL [Concomitant]
  7. COLACE [Concomitant]
  8. RESTORIL [Concomitant]
  9. ZOCOR [Concomitant]
  10. ALTACE [Concomitant]
  11. LANOXIN [Concomitant]
  12. COREG [Concomitant]

REACTIONS (6)
  - CONTUSION [None]
  - FALL [None]
  - HEADACHE [None]
  - HEMIPARESIS [None]
  - INTERNATIONAL NORMALISED RATIO INCREASED [None]
  - SUBDURAL HAEMATOMA [None]
